FAERS Safety Report 7395051-1 (Version None)
Quarter: 2011Q2

REPORT INFORMATION
  Report Type: 
  Country: None (occurrence: None)
  Receive Date: 20110405
  Receipt Date: 20110329
  Transmission Date: 20111010
  Serious: Yes (Hospitalization)
  Sender: FDA-Public Use
  Company Number: JP-MERCK-1101USA03415

PATIENT
  Age: 65 Year
  Sex: Male

DRUGS (6)
  1. FOIPAN [Concomitant]
     Route: 065
  2. TAKEPRON [Concomitant]
     Route: 065
  3. EBASTINE [Concomitant]
     Route: 065
  4. JANUVIA [Suspect]
     Indication: TYPE 2 DIABETES MELLITUS
     Route: 048
     Dates: start: 20100728, end: 20101228
  5. ACINON [Concomitant]
     Route: 065
  6. GANATON [Concomitant]
     Route: 065

REACTIONS (2)
  - NEPHROTIC SYNDROME [None]
  - PRURITUS ALLERGIC [None]
